FAERS Safety Report 21364958 (Version 1)
Quarter: 2022Q3

REPORT INFORMATION
  Report Type: Spontaneous
  Country: US (occurrence: US)
  Receive Date: 20220922
  Receipt Date: 20220922
  Transmission Date: 20221027
  Serious: No
  Sender: FDA-Public Use
  Company Number: US-CURIUM-2022000634

PATIENT

DRUGS (4)
  1. TETRAKIS(2-METHOXYISOBUTYLISOCYANIDE)COPPER(I) TETRAFLUOROBORATE [Suspect]
     Active Substance: TETRAKIS(2-METHOXYISOBUTYLISOCYANIDE)COPPER(I) TETRAFLUOROBORATE
     Indication: Radioisotope scan
     Route: 065
  2. TETRAKIS(2-METHOXYISOBUTYLISOCYANIDE)COPPER(I) TETRAFLUOROBORATE [Suspect]
     Active Substance: TETRAKIS(2-METHOXYISOBUTYLISOCYANIDE)COPPER(I) TETRAFLUOROBORATE
     Indication: Radioisotope scan
     Route: 065
  3. ULTRA-TECHNEKOW [Suspect]
     Active Substance: TECHNETIUM TC-99M
     Indication: Radioisotope scan
     Route: 065
  4. ULTRA-TECHNEKOW [Suspect]
     Active Substance: TECHNETIUM TC-99M
     Indication: Radioisotope scan
     Route: 065

REACTIONS (4)
  - Radioisotope scan abnormal [Unknown]
  - Drug ineffective [Unknown]
  - Product preparation error [Unknown]
  - Radiation overdose [Unknown]
